FAERS Safety Report 17103745 (Version 66)
Quarter: 2022Q4

REPORT INFORMATION
  Report Type: Other
  Country: GB (occurrence: GB)
  Receive Date: 20191203
  Receipt Date: 20221107
  Transmission Date: 20230113
  Serious: Yes (Hospitalization, Other)
  Sender: FDA-Public Use
  Company Number: None

PATIENT
  Age: 7 Year
  Sex: Male

DRUGS (215)
  1. DUTASTERIDE [Suspect]
     Active Substance: DUTASTERIDE
     Indication: Product used for unknown indication
     Dosage: 500 MICROGRAM, QD CAPSULE SOFT
     Route: 065
  2. DUTASTERIDE [Suspect]
     Active Substance: DUTASTERIDE
     Dosage: UNK, CAPSULE
     Route: 065
  3. DUTASTERIDE [Suspect]
     Active Substance: DUTASTERIDE
     Dosage: 500 MILLIGRAM, QD (STRENGTH: 500 MCG)(CAPSULE)
     Route: 065
  4. DUTASTERIDE [Suspect]
     Active Substance: DUTASTERIDE
     Dosage: 500 GRAM, QD (CAPSULE)
     Route: 065
  5. DUTASTERIDE [Suspect]
     Active Substance: DUTASTERIDE
     Dosage: 500 MICROGRAM, QD
     Route: 065
  6. DUTASTERIDE [Suspect]
     Active Substance: DUTASTERIDE
     Dosage: 500 GRAM, QD (CAPSULE)
     Route: 065
  7. DUTASTERIDE [Suspect]
     Active Substance: DUTASTERIDE
     Dosage: 500 GRAM, QD (CAPSULE, SOFT)
     Route: 065
  8. DUTASTERIDE [Suspect]
     Active Substance: DUTASTERIDE
     Dosage: 500 MILLIGRAM,UNK STRENGTH: 500 MCG, DRUG TAKEN BEYOND EXPIRY DATE, MEDICATION ERROR, MISUSE
     Route: 065
  9. DUTASTERIDE [Suspect]
     Active Substance: DUTASTERIDE
     Dosage: 500 MILLIGRAM, QD
     Route: 065
  10. DUTASTERIDE [Suspect]
     Active Substance: DUTASTERIDE
     Dosage: 500 MICROGRAM, QD
     Route: 065
  11. DUTASTERIDE [Suspect]
     Active Substance: DUTASTERIDE
     Dosage: 500 MICROGRAM, PER DAY STRENGTH 500  MICROGRAM
     Route: 065
  12. DUTASTERIDE [Suspect]
     Active Substance: DUTASTERIDE
     Dosage: UNK, QD (STRENGTH: 500 MCG DOSE: 500 QD)
     Route: 065
  13. DUTASTERIDE [Suspect]
     Active Substance: DUTASTERIDE
     Dosage: 500 MICROGRAM, PER DAY CAPSULE SOFT
     Route: 065
  14. DUTASTERIDE [Suspect]
     Active Substance: DUTASTERIDE
     Dosage: 500 MILLIGRAM, QD CAPSULE
     Route: 065
  15. DUTASTERIDE [Suspect]
     Active Substance: DUTASTERIDE
     Dosage: 500 GRAM, QD
     Route: 065
  16. DUTASTERIDE [Suspect]
     Active Substance: DUTASTERIDE
     Dosage: 500 MILLIGRAM DAILY STRENGTH 500 MCG, CAPSULE
     Route: 065
  17. DUTASTERIDE [Suspect]
     Active Substance: DUTASTERIDE
     Dosage: 500 MICROGRAM, STRENGTH 500 MCG
     Route: 065
  18. DUTASTERIDE [Suspect]
     Active Substance: DUTASTERIDE
     Dosage: 500 UNK STRENGTH 500 MCG
     Route: 065
  19. DUTASTERIDE [Suspect]
     Active Substance: DUTASTERIDE
     Dosage: 500 MICROGRAM PER DAY
     Route: 065
  20. DUTASTERIDE [Suspect]
     Active Substance: DUTASTERIDE
     Dosage: 500 MICROGRAM PER DAY
     Route: 065
  21. DUTASTERIDE [Suspect]
     Active Substance: DUTASTERIDE
     Dosage: 500 UNK STRENGTH 500 MCG
     Route: 065
  22. DUTASTERIDE [Suspect]
     Active Substance: DUTASTERIDE
     Dosage: 500 MICROGRAM STRENGTH 500 MCG
     Route: 065
  23. DUTASTERIDE [Suspect]
     Active Substance: DUTASTERIDE
     Dosage: 500 MICROGRAM STRENGTH 500 MCG
     Route: 065
  24. DUTASTERIDE [Suspect]
     Active Substance: DUTASTERIDE
     Dosage: 500 UNK STRENGTH 500 MCG
     Route: 065
  25. DUTASTERIDE [Suspect]
     Active Substance: DUTASTERIDE
     Dosage: UNK, QD (STRENGTH: 500 MCG DOSE: 500 QD)
     Route: 065
  26. DUTASTERIDE [Suspect]
     Active Substance: DUTASTERIDE
     Dosage: UNK, QD (STRENGTH: 500 MCG DOSE: 500 QD)
     Route: 065
  27. DUTASTERIDE [Suspect]
     Active Substance: DUTASTERIDE
     Dosage: 500 MICROGRAM PER DAY QD
     Route: 065
  28. TRAMADOL [Suspect]
     Active Substance: TRAMADOL
     Indication: Product used for unknown indication
     Dosage: 50 MILLIGRAM, QD (STRENGTH: 50 MG) (CAPSULE, HARD)
     Route: 065
  29. TRAMADOL [Suspect]
     Active Substance: TRAMADOL
     Dosage: 100 MILLIGRAM, QD (TABLET)
     Route: 065
  30. TRAMADOL [Suspect]
     Active Substance: TRAMADOL
     Dosage: UNK; CAPSULE
     Route: 065
  31. TRAMADOL [Suspect]
     Active Substance: TRAMADOL
     Dosage: UNK (STRENGTH: 100 MG)
     Route: 065
  32. TRAMADOL [Suspect]
     Active Substance: TRAMADOL
     Dosage: 100 MILLIGRAM PER DAY STRENGTH 100 MG CAPSULE
     Route: 065
  33. TRAMADOL [Suspect]
     Active Substance: TRAMADOL
     Dosage: 100 MILLIGRAM, QD (TRAMADOL 100 MG UNKNOWN STRENGTH: 100 MG)
     Route: 065
  34. TRAMADOL [Suspect]
     Active Substance: TRAMADOL
     Dosage: 50 MILLIGRAM, QD (50 MG UNKNOWN (STRENGTH: 50 MG)
     Route: 065
  35. TRAMADOL [Suspect]
     Active Substance: TRAMADOL
     Dosage: UNK, QD
     Route: 065
  36. TRAMADOL [Suspect]
     Active Substance: TRAMADOL
     Dosage: 100 MILLIGRAM, QD (STRENGTH: 50 MG) (CAPSULE, HARD)
     Route: 065
  37. TRAMADOL [Suspect]
     Active Substance: TRAMADOL
     Dosage: 100 MILLIGRAM, QD (QD (TABLET))
     Route: 065
  38. TRAMADOL [Suspect]
     Active Substance: TRAMADOL
     Dosage: UNK, QD, PER DAY
     Route: 065
  39. TRAMADOL [Suspect]
     Active Substance: TRAMADOL
     Dosage: 50 MILLIGRAM, DAILY, TRAMADOL 50 MG UNKNOWN (STRENGTH: 50 MG)
     Route: 065
  40. TRAMADOL [Suspect]
     Active Substance: TRAMADOL
     Dosage: UNK, CAPSULE HARD
     Route: 065
  41. TRAMADOL [Suspect]
     Active Substance: TRAMADOL
     Dosage: UNK, STRENGTH: 100 MG
     Route: 065
  42. TRAMADOL [Suspect]
     Active Substance: TRAMADOL
     Dosage: UNK, TABLET
     Route: 065
  43. TRAMADOL [Suspect]
     Active Substance: TRAMADOL
     Dosage: UNK, STRENGTH 50 MG
     Route: 065
  44. TRAMADOL [Suspect]
     Active Substance: TRAMADOL
     Dosage: 50 MILLIGRAM,STRENGTH: 100 MG (CAPSULE)
     Route: 065
  45. TRAMADOL [Suspect]
     Active Substance: TRAMADOL
     Dosage: UNK (TABLET)
     Route: 065
  46. TRAMADOL [Suspect]
     Active Substance: TRAMADOL
     Dosage: UNK
     Route: 065
  47. TRAMADOL [Suspect]
     Active Substance: TRAMADOL
     Dosage: 100 MILLIGRAM, PER DAY
     Route: 065
  48. TRAMADOL [Suspect]
     Active Substance: TRAMADOL
     Dosage: 100 MILLIGRAM, QD (ONCE A DAY (CAPSULE))
     Route: 065
  49. TRAMADOL [Suspect]
     Active Substance: TRAMADOL
     Dosage: 50 MILLIGRAM, QD TABLET
     Route: 065
  50. TRAMADOL [Suspect]
     Active Substance: TRAMADOL
     Dosage: 50 MILLIGRAM, STRENGTH: 100 MG
     Route: 065
  51. TRAMADOL [Suspect]
     Active Substance: TRAMADOL
     Dosage: UNK
     Route: 065
  52. TRAMADOL [Suspect]
     Active Substance: TRAMADOL
     Dosage: 50 MILLIGRAM, QD CAPSULE, HARD, (STRENGTH: 50 MG)
     Route: 065
  53. TRAMADOL [Suspect]
     Active Substance: TRAMADOL
     Dosage: UNK, QOD
     Route: 065
  54. TRAMADOL [Suspect]
     Active Substance: TRAMADOL
     Dosage: 100 MILLIGRAM, QD
     Route: 065
  55. TRAMADOL [Suspect]
     Active Substance: TRAMADOL
     Dosage: 100 MILLIGRAM, QD
     Route: 065
  56. TRAMADOL [Suspect]
     Active Substance: TRAMADOL
     Dosage: 50 MILLIGRAM, QD
     Route: 065
  57. TRAMADOL [Suspect]
     Active Substance: TRAMADOL
     Dosage: 50 MILLIGRAM STRENGTH 50 MG CAPSULE
     Route: 065
  58. TRAMADOL [Suspect]
     Active Substance: TRAMADOL
     Dosage: 100 MILLIGRAM
     Route: 065
  59. TRAMADOL [Suspect]
     Active Substance: TRAMADOL
     Dosage: 100 MILLIGRAM PER DAY (CAPSULE)
     Route: 065
  60. TRAMADOL [Suspect]
     Active Substance: TRAMADOL
     Dosage: UNK, QD
     Route: 065
  61. TRAMADOL [Suspect]
     Active Substance: TRAMADOL
     Dosage: UNK
     Route: 065
  62. TRAMADOL [Suspect]
     Active Substance: TRAMADOL
     Dosage: 100 MILLIGRAM
     Route: 065
  63. TRAMADOL [Suspect]
     Active Substance: TRAMADOL
     Dosage: UNK, QD
     Route: 065
  64. TRAMADOL [Suspect]
     Active Substance: TRAMADOL
     Dosage: UNK
     Route: 065
  65. TRAMADOL [Suspect]
     Active Substance: TRAMADOL
     Dosage: UNK
     Route: 065
  66. TRAMADOL [Suspect]
     Active Substance: TRAMADOL
     Dosage: 50 MILLIGRAM STRENGTH 50 MG CAPSULE
     Route: 065
  67. TRAMADOL [Suspect]
     Active Substance: TRAMADOL
     Dosage: 100 MILLIGRAM
     Route: 065
  68. TRAMADOL [Suspect]
     Active Substance: TRAMADOL
     Dosage: UNK
     Route: 065
  69. TRAMADOL [Suspect]
     Active Substance: TRAMADOL
     Dosage: UNK
     Route: 065
  70. TRAMADOL [Suspect]
     Active Substance: TRAMADOL
     Dosage: 100 UNK, STRENGRTH 100 MG, CAPSULE HARD
     Route: 065
  71. TRAMADOL [Suspect]
     Active Substance: TRAMADOL
     Dosage: 100 MILLIGRAM
     Route: 065
  72. TRAMADOL [Suspect]
     Active Substance: TRAMADOL
     Dosage: 100 MILLIGRAM, QD
     Route: 065
  73. TRAMADOL [Suspect]
     Active Substance: TRAMADOL
     Dosage: 100 MILLIGRAM, QD
     Route: 065
  74. TRAMADOL [Suspect]
     Active Substance: TRAMADOL
     Dosage: 50 MILLIGRAM, QD TABLET
     Route: 065
  75. TRAMADOL [Suspect]
     Active Substance: TRAMADOL
     Dosage: 100 MILLIGRAM, QD
     Route: 065
  76. TRAMADOL [Suspect]
     Active Substance: TRAMADOL
     Dosage: UNK
     Route: 065
  77. TRAMADOL [Suspect]
     Active Substance: TRAMADOL
     Dosage: UNK
     Route: 065
  78. VANCOMYCIN [Suspect]
     Active Substance: VANCOMYCIN
     Indication: Bacteraemia
     Dosage: UNK
     Route: 042
  79. VANCOMYCIN [Suspect]
     Active Substance: VANCOMYCIN
     Indication: Device related infection
     Dosage: UNK
     Route: 065
  80. VANCOMYCIN [Suspect]
     Active Substance: VANCOMYCIN
     Dosage: UNK (POWDER FOR CONCENTRATE FOR SOLUTION FOR INFUSION)
     Route: 065
  81. VANCOMYCIN [Suspect]
     Active Substance: VANCOMYCIN
     Dosage: UNK
     Route: 065
  82. VANCOMYCIN [Suspect]
     Active Substance: VANCOMYCIN
     Dosage: UNK
     Route: 065
  83. VANCOMYCIN [Suspect]
     Active Substance: VANCOMYCIN
     Dosage: UNK, (POWDER FOR CONCENTRATE FOR SOLUTION FOR INFUSION)
     Route: 042
  84. VANCOMYCIN [Suspect]
     Active Substance: VANCOMYCIN
     Dosage: UNK
     Route: 065
  85. VANCOMYCIN [Suspect]
     Active Substance: VANCOMYCIN
     Dosage: UNK
     Route: 065
  86. VANCOMYCIN [Suspect]
     Active Substance: VANCOMYCIN
     Dosage: UNK, (POWDER FOR CONCENTRATE FOR SOLUTION FOR INFUSION)
     Route: 042
  87. VANCOMYCIN [Suspect]
     Active Substance: VANCOMYCIN
     Dosage: UNK, (POWDER FOR CONCENTRATE FOR SOLUTION FOR INFUSION; DRUG TAKEN BEYOND EXPIRY DATE, MEDICATION ER
     Route: 042
  88. VANCOMYCIN [Suspect]
     Active Substance: VANCOMYCIN
     Dosage: UNK, (POWDER FOR CONCENTRATE FOR SOLUTION FOR INFUSION; DRUG TAKEN BEYOND EXPIRY DATE, MEDICATION ER
     Route: 042
  89. BISOPROLOL [Suspect]
     Active Substance: BISOPROLOL
     Indication: Product used for unknown indication
     Dosage: 2.5 MILLIGRAM, QD
     Route: 065
  90. BISOPROLOL [Suspect]
     Active Substance: BISOPROLOL
     Dosage: UNK
     Route: 065
  91. BISOPROLOL [Suspect]
     Active Substance: BISOPROLOL
     Dosage: 2.5 MILLIGRAM, QD STRENGTH 2.5 MG
     Route: 065
  92. BISOPROLOL [Suspect]
     Active Substance: BISOPROLOL
     Dosage: 2.5 MILLIGRAM, QD STRENGHT 2.5MG
     Route: 065
  93. BISOPROLOL [Suspect]
     Active Substance: BISOPROLOL
     Dosage: 2.5 MILLIGRAM, QD
     Route: 065
  94. BISOPROLOL [Suspect]
     Active Substance: BISOPROLOL
     Dosage: 2.5 MILLIGRAM, QD
     Route: 065
  95. BISOPROLOL [Suspect]
     Active Substance: BISOPROLOL
     Dosage: UNK
     Route: 042
  96. BISOPROLOL [Suspect]
     Active Substance: BISOPROLOL
     Dosage: 2.5 MILLIGRAM STRENGTH2.5 MG (,DRUG TAKEN BEYOND EXPIRY DATE, MEDICATION ERROR, MISUSE, OFF LABEL)
     Route: 065
  97. BISOPROLOL [Suspect]
     Active Substance: BISOPROLOL
     Dosage: 2.5 MILLIGRAM, ONCE A DAY, QD
     Route: 065
  98. BISOPROLOL [Suspect]
     Active Substance: BISOPROLOL
     Dosage: 2.5 MILLIGRAM PER DAY, STRENGTH: 2.5 MG
     Route: 065
  99. BISOPROLOL [Suspect]
     Active Substance: BISOPROLOL
     Dosage: 2.5 MILLIGRAM, STRENGTH: 2.5 MG (DRUG TAKEN BEYOND EXPIRY DATE, MEDICATION ERROR, MISUSE, OFF LABEL)
     Route: 065
  100. BISOPROLOL [Suspect]
     Active Substance: BISOPROLOL
     Dosage: UNK
     Route: 042
  101. BISOPROLOL [Suspect]
     Active Substance: BISOPROLOL
     Dosage: 2.5 MILLIGRAM, QD
     Route: 065
  102. BISOPROLOL [Suspect]
     Active Substance: BISOPROLOL
     Dosage: 2.5 MILLIGRAM, QD
     Route: 065
  103. BISOPROLOL [Suspect]
     Active Substance: BISOPROLOL
     Dosage: 2.5 MILLIGRAM, ONCE A DAY, QD
     Route: 065
  104. BISOPROLOL [Suspect]
     Active Substance: BISOPROLOL
     Dosage: 2.5 MILLIGRAM, STRENGTH: 2.5 MG (DRUG TAKEN BEYOND EXPIRY DATE, MEDICATION ERROR, MISUSE, OFF LABEL)
     Route: 065
  105. LANSOPRAZOLE [Suspect]
     Active Substance: LANSOPRAZOLE
     Indication: Gastrooesophageal reflux disease
     Dosage: 15 MILLIGRAM, QD (CAPSULE)
     Route: 065
  106. LANSOPRAZOLE [Suspect]
     Active Substance: LANSOPRAZOLE
     Dosage: 2.5 MILLIGRAM, PER DAY, (STRENGTH: 2.5 MG) CAPSULE
     Route: 065
  107. LANSOPRAZOLE [Suspect]
     Active Substance: LANSOPRAZOLE
     Dosage: UNK; CAPSULE
     Route: 065
  108. LANSOPRAZOLE [Suspect]
     Active Substance: LANSOPRAZOLE
     Dosage: UNK, CAPSULE
     Route: 065
  109. LANSOPRAZOLE [Suspect]
     Active Substance: LANSOPRAZOLE
     Dosage: UNK, CAPSULE
     Route: 065
  110. LANSOPRAZOLE [Suspect]
     Active Substance: LANSOPRAZOLE
     Dosage: 15 MILLIGRAM, UNK
     Route: 065
  111. LANSOPRAZOLE [Suspect]
     Active Substance: LANSOPRAZOLE
     Dosage: 15 MILLIGRAM, QD
     Route: 065
  112. LANSOPRAZOLE [Suspect]
     Active Substance: LANSOPRAZOLE
     Dosage: 2.5 MILLIGRAM, UNK
     Route: 065
  113. LANSOPRAZOLE [Suspect]
     Active Substance: LANSOPRAZOLE
     Dosage: 15 MILLIGRAM, QD
     Route: 065
  114. LANSOPRAZOLE [Suspect]
     Active Substance: LANSOPRAZOLE
     Dosage: 2.5 MILLIGRAM, QD (STRENGTH 15 MG)
     Route: 065
  115. LANSOPRAZOLE [Suspect]
     Active Substance: LANSOPRAZOLE
     Dosage: UNK (CAPSULE)
     Route: 065
  116. LANSOPRAZOLE [Suspect]
     Active Substance: LANSOPRAZOLE
     Dosage: 15 MILLIGRAM, QD (STRENGTH 2.5 MG)
     Route: 065
  117. LANSOPRAZOLE [Suspect]
     Active Substance: LANSOPRAZOLE
     Dosage: 2.5 MILLIGRAM, QD (CAPSULE)
     Route: 065
  118. LANSOPRAZOLE [Suspect]
     Active Substance: LANSOPRAZOLE
     Dosage: 2.5 MILLIGRAM, STRENGTH: 15 MG, CAPSULE
     Route: 065
  119. LANSOPRAZOLE [Suspect]
     Active Substance: LANSOPRAZOLE
     Dosage: UNK (STRENGTH 2.5 MILLIGRAM)
     Route: 065
  120. LANSOPRAZOLE [Suspect]
     Active Substance: LANSOPRAZOLE
     Dosage: 15 MILLIGRAM, QD
     Route: 065
  121. LANSOPRAZOLE [Suspect]
     Active Substance: LANSOPRAZOLE
     Dosage: 15 MILLIGRAM, QD
     Route: 065
  122. LANSOPRAZOLE [Suspect]
     Active Substance: LANSOPRAZOLE
     Dosage: 15 MILLIGRAM, QD (STRENGTH 2.5 MG) CAPSULE
     Route: 065
  123. LANSOPRAZOLE [Suspect]
     Active Substance: LANSOPRAZOLE
     Dosage: 2.5 MILLIGRAM, UNK, CAPSULE
     Route: 065
  124. LANSOPRAZOLE [Suspect]
     Active Substance: LANSOPRAZOLE
     Dosage: 2.5 MILLIGRAM, STRENGTH: 15 MG
     Route: 065
  125. LANSOPRAZOLE [Suspect]
     Active Substance: LANSOPRAZOLE
     Dosage: 15 MILLIGRAM, QD (STRENGTH: 15 MG, CAPSULE)
     Route: 065
  126. LANSOPRAZOLE [Suspect]
     Active Substance: LANSOPRAZOLE
     Dosage: 15 MILLIGRAM PER DAY QD CAPSULE
     Route: 065
  127. LANSOPRAZOLE [Suspect]
     Active Substance: LANSOPRAZOLE
     Dosage: 15 MILLIGRAM PER DAY QD CAPSULE
     Route: 065
  128. LANSOPRAZOLE [Suspect]
     Active Substance: LANSOPRAZOLE
     Dosage: UNK
     Route: 065
  129. LANSOPRAZOLE [Suspect]
     Active Substance: LANSOPRAZOLE
     Dosage: UNK, QD STRENGTH: 15 MG QD
     Route: 065
  130. LANSOPRAZOLE [Suspect]
     Active Substance: LANSOPRAZOLE
     Dosage: UNK (STRENGTH 15 MILLIGRAM)
     Route: 065
  131. LANSOPRAZOLE [Suspect]
     Active Substance: LANSOPRAZOLE
     Dosage: UNK (STRENGTH 2.5 MILLIGRAM)
     Route: 065
  132. LANSOPRAZOLE [Suspect]
     Active Substance: LANSOPRAZOLE
     Dosage: UNK (STRENGTH 2.5 MILLIGRAM)
     Route: 065
  133. LANSOPRAZOLE [Suspect]
     Active Substance: LANSOPRAZOLE
     Dosage: 2.5 MILLIGRAM, UNK
     Route: 065
  134. LANSOPRAZOLE [Suspect]
     Active Substance: LANSOPRAZOLE
     Dosage: 15 MILLIGRAM, QD (STRENGTH: 15 MG, CAPSULE)
     Route: 065
  135. LANSOPRAZOLE [Suspect]
     Active Substance: LANSOPRAZOLE
     Dosage: 2.5 MILLIGRAM, STRENGTH: 15 MG
     Route: 065
  136. LANSOPRAZOLE [Suspect]
     Active Substance: LANSOPRAZOLE
     Dosage: 15 MILLIGRAM, QD (STRENGTH: 15 MG, CAPSULE)
     Route: 065
  137. LANSOPRAZOLE [Suspect]
     Active Substance: LANSOPRAZOLE
     Dosage: 2.5 MILLIGRAM, UNK
     Route: 065
  138. LANSOPRAZOLE [Suspect]
     Active Substance: LANSOPRAZOLE
     Dosage: 2.5 MILLIGRAM, UNK
     Route: 065
  139. LANSOPRAZOLE [Suspect]
     Active Substance: LANSOPRAZOLE
     Dosage: 2.5 MILLIGRAM, UNK
     Route: 065
  140. LANSOPRAZOLE [Suspect]
     Active Substance: LANSOPRAZOLE
     Dosage: UNK (STRENGTH 2.5 MILLIGRAM)
     Route: 065
  141. LANSOPRAZOLE [Suspect]
     Active Substance: LANSOPRAZOLE
     Dosage: UNK (STRENGTH 2.5 MILLIGRAM)
     Route: 065
  142. LANSOPRAZOLE [Suspect]
     Active Substance: LANSOPRAZOLE
     Dosage: 15 MILLIGRAM, QD
     Route: 065
  143. LANSOPRAZOLE [Suspect]
     Active Substance: LANSOPRAZOLE
     Dosage: 15 MILLIGRAM, QD
     Route: 065
  144. LANSOPRAZOLE [Suspect]
     Active Substance: LANSOPRAZOLE
     Dosage: 2.5 MILLIGRAM, UNK
     Route: 065
  145. LANSOPRAZOLE [Suspect]
     Active Substance: LANSOPRAZOLE
     Dosage: 15 MILLIGRAM, UNK
     Route: 065
  146. LANSOPRAZOLE [Suspect]
     Active Substance: LANSOPRAZOLE
     Dosage: 15 MILLIGRAM, QD
     Route: 065
  147. LANSOPRAZOLE [Suspect]
     Active Substance: LANSOPRAZOLE
     Dosage: 15 MILLIGRAM, QD
     Route: 065
  148. LANSOPRAZOLE [Suspect]
     Active Substance: LANSOPRAZOLE
     Dosage: 15 MILLIGRAM, QD
     Route: 065
  149. LANSOPRAZOLE [Suspect]
     Active Substance: LANSOPRAZOLE
     Dosage: 15 MILLIGRAM, QD
     Route: 065
  150. LANSOPRAZOLE [Suspect]
     Active Substance: LANSOPRAZOLE
     Dosage: 15 MILLIGRAM, QD
     Route: 065
  151. LANSOPRAZOLE [Suspect]
     Active Substance: LANSOPRAZOLE
     Dosage: 15 MILLIGRAM, QD
     Route: 065
  152. LANSOPRAZOLE [Suspect]
     Active Substance: LANSOPRAZOLE
     Dosage: 2.5 MILLIGRAM, STRENGTH: 15 MG
     Route: 065
  153. LANSOPRAZOLE [Suspect]
     Active Substance: LANSOPRAZOLE
     Dosage: 15 MILLIGRAM, QD
     Route: 065
  154. LANSOPRAZOLE [Suspect]
     Active Substance: LANSOPRAZOLE
     Dosage: 15 MILLIGRAM, QD
     Route: 065
  155. ALFUZOSIN [Suspect]
     Active Substance: ALFUZOSIN
     Indication: Product used for unknown indication
     Dosage: 10 MILLIGRAM PER DAY, (ALFUNZOSIN 10 MG, UNKNOWN) (STRENGTH 10 MG) (TABLETS)
     Route: 065
  156. ALFUZOSIN [Suspect]
     Active Substance: ALFUZOSIN
     Dosage: UNK
     Route: 065
  157. ALFUZOSIN [Suspect]
     Active Substance: ALFUZOSIN
     Dosage: 10 MILLIGRAM, QD/ 1 DF/QD (PROLONGED-RELEASE TABLET)
     Route: 065
  158. ALFUZOSIN [Suspect]
     Active Substance: ALFUZOSIN
     Dosage: UNK
     Route: 065
  159. ALFUZOSIN [Suspect]
     Active Substance: ALFUZOSIN
     Dosage: 10 MILLIGRAM, QD
     Route: 065
  160. ALFUZOSIN [Suspect]
     Active Substance: ALFUZOSIN
     Dosage: 10 MILLIGRAM DAILY
     Route: 065
  161. ALFUZOSIN [Suspect]
     Active Substance: ALFUZOSIN
     Dosage: 10 MILLIGRAM, QD (FILM-COATED TABLET)
     Route: 065
  162. ALFUZOSIN [Suspect]
     Active Substance: ALFUZOSIN
     Dosage: 10 MILLIGRAM DAILY
     Route: 065
  163. ALFUZOSIN [Suspect]
     Active Substance: ALFUZOSIN
     Dosage: 1 DOSAGE FORM PER DAY
     Route: 065
  164. ALFUZOSIN [Suspect]
     Active Substance: ALFUZOSIN
     Dosage: UNK (STRENGTH: 10 MG), ADDITIONAL INFO: DRUG TAKEN BEYOND EXPIRY DATE, MEDICATION ERROR, MISUSE
     Route: 065
  165. ALFUZOSIN [Suspect]
     Active Substance: ALFUZOSIN
     Dosage: 10 MILLIGRAM, UNK(STRENGTH: 10 MG)PROLONGED-RELEASE TABLET
     Route: 065
  166. ALFUZOSIN [Suspect]
     Active Substance: ALFUZOSIN
     Dosage: 10 MILLIGRAM, 1 DF, QD, STRENGTH: 10 MG, FILM-COATED TABLET
     Route: 065
  167. ALFUZOSIN [Suspect]
     Active Substance: ALFUZOSIN
     Dosage: 10 MILLIGRAM, STRENGTH: 10 MG
     Route: 065
  168. ALFUZOSIN [Suspect]
     Active Substance: ALFUZOSIN
     Dosage: UNK, (STRENGTH: 10 MG)
     Route: 065
  169. ALFUZOSIN [Suspect]
     Active Substance: ALFUZOSIN
     Dosage: 10 MILLIGRAM, TABLET
     Route: 065
  170. ALFUZOSIN [Suspect]
     Active Substance: ALFUZOSIN
     Dosage: 10 MILLIGRAM, QD TABLET
     Route: 065
  171. ALFUZOSIN [Suspect]
     Active Substance: ALFUZOSIN
     Dosage: 10 MILLIGRAM, QD, TABLET
     Route: 065
  172. ALFUZOSIN [Suspect]
     Active Substance: ALFUZOSIN
     Dosage: 10 MILLIGRAM PER DAY, STRENGTH: 10 MG (PROLONGED-RELEASE TABLET)
     Route: 065
  173. ALFUZOSIN [Suspect]
     Active Substance: ALFUZOSIN
     Dosage: 10 MILLIGRAM, PER DAY (FILM-COATED TABLET) STRENGTH 10 MG
     Route: 065
  174. ALFUZOSIN [Suspect]
     Active Substance: ALFUZOSIN
     Dosage: 10 MILLIGRAM, PER DAY (FILM-COATED TABLET), STRENGTH: 10 MG
     Route: 065
  175. ALFUZOSIN [Suspect]
     Active Substance: ALFUZOSIN
     Dosage: 10 MILLIGRAM, PER DAY (PROLONGED-RELEASE TABLET), STRENGTH: 10 MG/1 DF
     Route: 065
  176. ALFUZOSIN [Suspect]
     Active Substance: ALFUZOSIN
     Dosage: 10 MILLIGRAM PER DAY QD STRENGTH 10 MG
     Route: 065
  177. ALFUZOSIN [Suspect]
     Active Substance: ALFUZOSIN
     Dosage: 10 MILLIGRAM 10 MG PER DAY, QD (10 MILLIGRAM, STRENGTH: 10 MG, 10 MG, QD,ADDITIONAL)
     Route: 065
  178. ALFUZOSIN [Suspect]
     Active Substance: ALFUZOSIN
     Dosage: 10 MILLIGRAM  PER DAY,10 MG, QD (10 MILLIGRAM, STRENGTH: 10 MG, 10 MG, QD,ADDITIONAL)
     Route: 065
  179. ALFUZOSIN [Suspect]
     Active Substance: ALFUZOSIN
     Dosage: 1 DOSAGE FORM, QD
     Route: 065
  180. ALFUZOSIN [Suspect]
     Active Substance: ALFUZOSIN
     Dosage: UNK (STRENGTH: 10 MG), ADDITIONAL INFO: DRUG TAKEN BEYOND EXPIRY DATE, MEDICATION ERROR, MISUSE
     Route: 065
  181. ALFUZOSIN [Suspect]
     Active Substance: ALFUZOSIN
     Dosage: 10 MILLIGRAM, QD
     Route: 065
  182. ALFUZOSIN [Suspect]
     Active Substance: ALFUZOSIN
     Dosage: UNK DOSAGE FORM, QD
     Route: 065
  183. ALFUZOSIN [Suspect]
     Active Substance: ALFUZOSIN
     Dosage: UNK (STRENGTH: 10 MG), ADDITIONAL INFO: DRUG TAKEN BEYOND EXPIRY DATE, MEDICATION ERROR, MISUSE
     Route: 065
  184. ALFUZOSIN [Suspect]
     Active Substance: ALFUZOSIN
     Dosage: UNK (STRENGTH: 10 MG), ADDITIONAL INFO: DRUG TAKEN BEYOND EXPIRY DATE, MEDICATION ERROR, MISUSE
     Route: 065
  185. ALFUZOSIN [Suspect]
     Active Substance: ALFUZOSIN
     Dosage: UNK (STRENGTH: 10 MG), ADDITIONAL INFO: DRUG TAKEN BEYOND EXPIRY DATE, MEDICATION ERROR, MISUSE
     Route: 065
  186. ALFUZOSIN [Suspect]
     Active Substance: ALFUZOSIN
     Dosage: 10 MILLIGRAM, QD
     Route: 065
  187. ALFUZOSIN [Suspect]
     Active Substance: ALFUZOSIN
     Dosage: UNK (STRENGTH: 10 MG), ADDITIONAL INFO: DRUG TAKEN BEYOND EXPIRY DATE, MEDICATION ERROR, MISUSE
     Route: 065
  188. ALFUZOSIN [Suspect]
     Active Substance: ALFUZOSIN
     Dosage: 10 MILLIGRAM, QD
     Route: 065
  189. ALFUZOSIN [Suspect]
     Active Substance: ALFUZOSIN
     Dosage: 10 MILLIGRAM, STRENGTH: 10 MG
     Route: 065
  190. ALFUZOSIN [Suspect]
     Active Substance: ALFUZOSIN
     Dosage: 10 MILLIGRAM, STRENGTH: 10 MG
     Route: 065
  191. ALFUZOSIN [Suspect]
     Active Substance: ALFUZOSIN
     Dosage: 10 MILLIGRAM, QD
     Route: 065
  192. ALFUZOSIN [Suspect]
     Active Substance: ALFUZOSIN
     Dosage: 10 MILLIGRAM PER DAY, STRENGTH 10 MG
     Route: 065
  193. ALFUZOSIN [Suspect]
     Active Substance: ALFUZOSIN
     Dosage: 10 MILLIGRAM, QD
     Route: 065
  194. ALFUZOSIN [Suspect]
     Active Substance: ALFUZOSIN
     Dosage: 10 MILLIGRAM, QD
     Route: 065
  195. ALFUZOSIN [Suspect]
     Active Substance: ALFUZOSIN
     Dosage: 10 MILLIGRAM, QD
     Route: 065
  196. ALFUZOSIN [Suspect]
     Active Substance: ALFUZOSIN
     Dosage: 10 MILLIGRAM, QD
     Route: 065
  197. ALFUZOSIN [Suspect]
     Active Substance: ALFUZOSIN
     Dosage: 1 DOSAGE FORM, QD
     Route: 065
  198. ALFUZOSIN [Suspect]
     Active Substance: ALFUZOSIN
     Dosage: 1 DOSAGE FORM, QD
     Route: 065
  199. ALFUZOSIN [Suspect]
     Active Substance: ALFUZOSIN
     Dosage: 1 DOSAGE FORM, QD
     Route: 065
  200. ALFUZOSIN [Suspect]
     Active Substance: ALFUZOSIN
     Dosage: 1 DOSAGE FORM, QD
     Route: 065
  201. ALFUZOSIN [Suspect]
     Active Substance: ALFUZOSIN
     Dosage: 10 MILLIGRAM
     Route: 065
  202. ALFUZOSIN [Suspect]
     Active Substance: ALFUZOSIN
     Dosage: 10 MILLIGRAM PER DAY
     Route: 065
  203. DAPTOMYCIN [Suspect]
     Active Substance: DAPTOMYCIN
     Indication: Bacteraemia
     Dosage: UNK,  POWDER FOR INJECTION
     Route: 042
  204. DAPTOMYCIN [Suspect]
     Active Substance: DAPTOMYCIN
     Indication: Device related infection
     Dosage: UNK, POWDER FOR INJECTION
     Route: 042
  205. DAPTOMYCIN [Suspect]
     Active Substance: DAPTOMYCIN
     Dosage: UNK (INJECTION)
     Route: 065
  206. DAPTOMYCIN [Suspect]
     Active Substance: DAPTOMYCIN
     Dosage: UNK,POWDER FOR INJECTION
     Route: 042
  207. DAPTOMYCIN [Suspect]
     Active Substance: DAPTOMYCIN
     Dosage: UNK
     Route: 065
  208. DAPTOMYCIN [Suspect]
     Active Substance: DAPTOMYCIN
     Dosage: UNK
     Route: 042
  209. DAPTOMYCIN [Suspect]
     Active Substance: DAPTOMYCIN
     Dosage: UNK (POWDER FOR INJECTION)
     Route: 042
  210. DAPTOMYCIN [Suspect]
     Active Substance: DAPTOMYCIN
     Dosage: UNK (POWDER FOR INJECTION)
     Route: 042
  211. DAPTOMYCIN [Suspect]
     Active Substance: DAPTOMYCIN
     Dosage: UNK
     Route: 042
  212. DAPTOMYCIN [Suspect]
     Active Substance: DAPTOMYCIN
     Dosage: UNK
     Route: 042
  213. DAPTOMYCIN [Suspect]
     Active Substance: DAPTOMYCIN
     Dosage: UNK
     Route: 042
  214. DAPTOMYCIN [Suspect]
     Active Substance: DAPTOMYCIN
     Dosage: 120 DOSAGE FORM (INJECTION)
     Route: 042
  215. LINEZOLID [Concomitant]
     Active Substance: LINEZOLID
     Indication: Product used for unknown indication
     Dosage: UNK
     Route: 065

REACTIONS (16)
  - Lower respiratory tract infection [Unknown]
  - Minimum inhibitory concentration [Unknown]
  - Antimicrobial susceptibility test resistant [Unknown]
  - Product dispensing error [Unknown]
  - Drug dispensed to wrong patient [Unknown]
  - Product storage error [Unknown]
  - Wrong product administered [Unknown]
  - Wrong patient received product [Unknown]
  - Wrong patient received product [Unknown]
  - Expired product administered [Unknown]
  - Product administration error [Unknown]
  - Intentional product misuse [Unknown]
  - Malaise [Unknown]
  - Malaise [Unknown]
  - Therapeutic response delayed [Unknown]
  - Therapy non-responder [Unknown]
